FAERS Safety Report 6969207-3 (Version None)
Quarter: 2010Q3

REPORT INFORMATION
  Report Type: 
  Country: None (occurrence: None)
  Receive Date: 20100907
  Receipt Date: 20100901
  Transmission Date: 20110219
  Serious: Yes (Hospitalization)
  Sender: FDA-Public Use
  Company Number: PHHO2010TR07111

PATIENT
  Sex: Male
  Weight: 82 kg

DRUGS (1)
  1. AFINITOR [Suspect]
     Indication: METASTATIC RENAL CELL CARCINOMA
     Dosage: 10MG, DAILY
     Route: 048
     Dates: start: 20091215, end: 20100425

REACTIONS (4)
  - DRUG INTOLERANCE [None]
  - INTESTINAL OBSTRUCTION [None]
  - SUBILEUS [None]
  - TREATMENT NONCOMPLIANCE [None]
